FAERS Safety Report 9379070 (Version 3)
Quarter: 2013Q3

REPORT INFORMATION
  Report Type: Report from Study
  Country: IT (occurrence: IT)
  Receive Date: 20130702
  Receipt Date: 20130904
  Transmission Date: 20140515
  Serious: Yes (Hospitalization)
  Sender: FDA-Public Use
  Company Number: PHHO2012IT011365

PATIENT
  Age: 64 Year
  Sex: Male
  Weight: 65 kg

DRUGS (6)
  1. CERTICAN [Suspect]
     Indication: RENAL TRANSPLANT
     Dosage: 0.75 MG, UNK
     Route: 048
     Dates: start: 20120615, end: 20120626
  2. CERTICAN [Suspect]
     Dosage: 1.75 MG, UNK
     Route: 048
     Dates: end: 20120707
  3. CERTICAN [Suspect]
     Dosage: UNK
     Dates: end: 20120716
  4. NEORAL [Suspect]
     Indication: RENAL TRANSPLANT
     Dosage: 250 MG, UNK
     Dates: start: 20120613, end: 20120626
  5. NEORAL [Suspect]
     Dosage: 150 MG, UNK
  6. ERL 080A [Suspect]
     Indication: RENAL TRANSPLANT
     Dosage: 1080 MG, UNK
     Dates: start: 20120716

REACTIONS (1)
  - Urinary anastomotic leak [Recovered/Resolved]
